FAERS Safety Report 7750014-9 (Version None)
Quarter: 2011Q3

REPORT INFORMATION
  Report Type: 
  Country: None (occurrence: None)
  Receive Date: 20110914
  Receipt Date: 20110901
  Transmission Date: 20111222
  Serious: Yes (Hospitalization, Disabling)
  Sender: FDA-Public Use
  Company Number: RU-CELGENEUS-251-50794-11053256

PATIENT
  Sex: Male
  Weight: 84 kg

DRUGS (5)
  1. IATRANUM [Concomitant]
     Indication: ANTIEMETIC SUPPORTIVE CARE
     Dosage: 8 MILLIGRAM
     Route: 041
     Dates: start: 20110429, end: 20110505
  2. VIDAZA [Suspect]
  3. SODIUM CHLORIDE [Concomitant]
     Indication: DEHYDRATION
     Dosage: 500 MILLILITER
     Route: 041
     Dates: start: 20110429, end: 20110505
  4. POTASSIUM CHLORIDE [Concomitant]
     Route: 065
  5. VIDAZA [Suspect]
     Route: 058
     Dates: start: 20110429, end: 20110505

REACTIONS (3)
  - PULMONARY OEDEMA [None]
  - HYDROTHORAX [None]
  - PNEUMONIA [None]
